FAERS Safety Report 22130921 (Version 2)
Quarter: 2023Q1

REPORT INFORMATION
  Report Type: Report from Study
  Country: IL (occurrence: IL)
  Receive Date: 20230323
  Receipt Date: 20230328
  Transmission Date: 20230418
  Serious: Yes (Hospitalization)
  Sender: FDA-Public Use
  Company Number: IL-ABBVIE-4698646

PATIENT
  Age: 83 Year
  Sex: Female
  Weight: 72 kg

DRUGS (16)
  1. SKYRIZI [Suspect]
     Active Substance: RISANKIZUMAB-RZAA
     Indication: Psoriasis
     Route: 058
     Dates: start: 20210809
  2. SKYRIZI [Suspect]
     Active Substance: RISANKIZUMAB-RZAA
     Route: 058
     Dates: start: 20220206
  3. SKYRIZI [Suspect]
     Active Substance: RISANKIZUMAB-RZAA
     Route: 058
     Dates: end: 20221011
  4. SKYRIZI [Suspect]
     Active Substance: RISANKIZUMAB-RZAA
     Route: 058
     Dates: start: 20220501
  5. SKYRIZI [Suspect]
     Active Substance: RISANKIZUMAB-RZAA
     Route: 058
     Dates: start: 20220720
  6. SKYRIZI [Suspect]
     Active Substance: RISANKIZUMAB-RZAA
     Route: 058
     Dates: start: 20211108
  7. AQUADON [Concomitant]
     Indication: Psoriasis
     Route: 061
     Dates: start: 20220412
  8. VALSARTAN [Concomitant]
     Active Substance: VALSARTAN
     Indication: Product used for unknown indication
     Dosage: 80 MILLIGRAM
     Route: 048
     Dates: start: 2019
  9. LIPITOR [Concomitant]
     Active Substance: ATORVASTATIN CALCIUM
     Indication: Product used for unknown indication
     Dosage: 40 MILLIGRAM
     Route: 048
     Dates: start: 2003
  10. PLAVIX [Concomitant]
     Active Substance: CLOPIDOGREL BISULFATE
     Indication: Product used for unknown indication
     Dosage: 75 MILLIGRAM
     Route: 048
     Dates: start: 2019
  11. PFIZER [Concomitant]
     Indication: COVID-19 immunisation
     Dates: start: 20210818, end: 20210818
  12. PFIZER [Concomitant]
     Indication: COVID-19 immunisation
     Dates: start: 202101, end: 202101
  13. ALPHOSYL [Concomitant]
     Indication: Psoriasis
     Dosage: REDUCED EFFECTIVENESS OVER TIME
     Dates: start: 20210620, end: 20220412
  14. EMOL [Concomitant]
     Indication: Psoriasis
     Dosage: BATH
     Route: 061
     Dates: start: 20220412
  15. BISOPROLOL FUMARATE [Concomitant]
     Active Substance: BISOPROLOL FUMARATE
     Indication: Product used for unknown indication
     Dosage: 5 MILLIGRAM
     Route: 048
  16. NERIDERM [Concomitant]
     Indication: Psoriasis
     Dosage: REDUCED EFFECTIVENESS OVER TIME,? OINTMENT0.1%
     Route: 061
     Dates: start: 20210620, end: 20220412

REACTIONS (2)
  - Abdominal pain upper [Recovered/Resolved]
  - Constipation [Recovered/Resolved]

NARRATIVE: CASE EVENT DATE: 20230226
